FAERS Safety Report 8271520-7 (Version None)
Quarter: 2012Q2

REPORT INFORMATION
  Report Type: 
  Country: None (occurrence: None)
  Receive Date: 20120410
  Receipt Date: 20120328
  Transmission Date: 20120825
  Serious: Yes (Hospitalization)
  Sender: FDA-Public Use
  Company Number: GR-GLAXOSMITHKLINE-Z0014896A

PATIENT
  Sex: Male
  Weight: 84 kg

DRUGS (2)
  1. BENDAMUSTINE [Suspect]
     Indication: NON-HODGKIN'S LYMPHOMA
     Dosage: 90MGM2 CYCLIC
     Route: 042
     Dates: start: 20120316
  2. OFATUMUMAB [Suspect]
     Indication: NON-HODGKIN'S LYMPHOMA
     Dosage: 1000MG CYCLIC
     Route: 042
     Dates: start: 20120315

REACTIONS (1)
  - FEBRILE NEUTROPENIA [None]
